FAERS Safety Report 14250700 (Version 1)
Quarter: 2017Q4

REPORT INFORMATION
  Report Type: Spontaneous
  Country: US (occurrence: US)
  Receive Date: 20171205
  Receipt Date: 20171205
  Transmission Date: 20180321
  Serious: No
  Sender: FDA-Public Use
  Company Number: US-PFIZER INC-2017516389

PATIENT
  Age: 79 Year
  Sex: Female
  Weight: 71 kg

DRUGS (3)
  1. STALEVO [Concomitant]
     Active Substance: CARBIDOPA\ENTACAPONE\LEVODOPA
     Indication: PARKINSONISM
     Dosage: 150 MG, 4X/DAY
     Dates: start: 2006
  2. IBRANCE [Suspect]
     Active Substance: PALBOCICLIB
     Indication: BREAST CANCER METASTATIC
     Dosage: 100 MG, CYCLIC (100MG CAPSULE BY MOUTH FOR THREE WEEKS ON AND ONE WEEK OFF)
     Route: 048
     Dates: start: 20171029
  3. ANASTROZOLE. [Concomitant]
     Active Substance: ANASTROZOLE
     Indication: BREAST CANCER
     Dosage: UNK

REACTIONS (4)
  - Lethargy [Unknown]
  - Mobility decreased [Not Recovered/Not Resolved]
  - Bedridden [Unknown]
  - Malaise [Unknown]

NARRATIVE: CASE EVENT DATE: 2017
